FAERS Safety Report 15289911 (Version 1)
Quarter: 2018Q3

REPORT INFORMATION
  Report Type: Spontaneous
  Country: GB (occurrence: GB)
  Receive Date: 20180817
  Receipt Date: 20180817
  Transmission Date: 20181010
  Serious: Yes (Life-Threatening, Hospitalization, Other)
  Sender: FDA-Public Use
  Company Number: GB-SA-2018SA149838

PATIENT
  Age: 76 Year
  Sex: Male
  Weight: 64.9 kg

DRUGS (9)
  1. AMLODIPINE [Concomitant]
     Active Substance: AMLODIPINE BESYLATE
  2. INDAPAMIDE. [Suspect]
     Active Substance: INDAPAMIDE
     Indication: ESSENTIAL HYPERTENSION
     Route: 048
     Dates: start: 20131119, end: 20180301
  3. CLOPIDOGREL [Concomitant]
     Active Substance: CLOPIDOGREL BISULFATE
  4. CLARITHROMYCIN. [Concomitant]
     Active Substance: CLARITHROMYCIN
  5. ATORVASTATIN [Concomitant]
     Active Substance: ATORVASTATIN
  6. DOXYCYCLINE. [Concomitant]
     Active Substance: DOXYCYCLINE
  7. SILDENAFIL. [Concomitant]
     Active Substance: SILDENAFIL
  8. PARACETAMOL [Concomitant]
     Active Substance: ACETAMINOPHEN
  9. BISOPROLOL [Concomitant]
     Active Substance: BISOPROLOL

REACTIONS (3)
  - Cardiac arrest [Recovered/Resolved]
  - Seizure [Recovered/Resolved]
  - Hyponatraemia [Recovered/Resolved]

NARRATIVE: CASE EVENT DATE: 20180301
